FAERS Safety Report 15021779 (Version 3)
Quarter: 2018Q3

REPORT INFORMATION
  Report Type: Spontaneous
  Country: SE (occurrence: SE)
  Receive Date: 20180618
  Receipt Date: 20180720
  Transmission Date: 20181010
  Serious: Yes (Hospitalization, Other)
  Sender: FDA-Public Use
  Company Number: SE-GLAXOSMITHKLINE-SE2018GSK103280

PATIENT
  Age: 85 Year
  Sex: Female
  Weight: 68 kg

DRUGS (12)
  1. SERETIDE [Concomitant]
     Active Substance: FLUTICASONE PROPIONATE\SALMETEROL XINAFOATE
     Indication: ASTHMA
     Dosage: UNK
  2. FURIX [Concomitant]
     Active Substance: FUROSEMIDE
     Indication: CARDIAC FAILURE
     Dosage: 1 DF(TABLET), 1D
  3. ZESTRIL [Concomitant]
     Active Substance: LISINOPRIL
     Indication: HYPERTENSION
     Dosage: 10 MG, 1D
  4. BUVENTOL EASYHALER [Concomitant]
     Active Substance: ALBUTEROL SULFATE
     Indication: ASTHMA
     Dosage: 200 ?G, UNK
  5. OMEPRAZOLE. [Concomitant]
     Active Substance: OMEPRAZOLE
     Indication: PRODUCT USED FOR UNKNOWN INDICATION
     Dosage: 40 MG, 1D
  6. PREDNISOLONE. [Concomitant]
     Active Substance: PREDNISOLONE
     Indication: SYSTEMIC LUPUS ERYTHEMATOSUS
     Dosage: 5 MG, 1D
  7. ALVESCO [Concomitant]
     Active Substance: CICLESONIDE
     Indication: ASTHMA
     Dosage: UNK
  8. RELVAR ELLIPTA [Suspect]
     Active Substance: FLUTICASONE FUROATE\VILANTEROL TRIFENATATE
     Indication: ASTHMA
     Dosage: UNK
     Dates: start: 20180517, end: 20180527
  9. LORATADINE. [Concomitant]
     Active Substance: LORATADINE
     Indication: RHINITIS ALLERGIC
     Dosage: 10 MG, BID
  10. ALVEDON [Concomitant]
     Active Substance: ACETAMINOPHEN
     Indication: PRODUCT USED FOR UNKNOWN INDICATION
     Dosage: UNK
  11. RELVAR ELLIPTA [Suspect]
     Active Substance: FLUTICASONE FUROATE\VILANTEROL TRIFENATATE
     Dosage: UNK
     Dates: start: 20180604, end: 2018
  12. DYMISTA [Concomitant]
     Active Substance: AZELASTINE HYDROCHLORIDE\FLUTICASONE PROPIONATE
     Indication: RHINITIS ALLERGIC
     Dosage: 1 DF(SPRAY), BID

REACTIONS (3)
  - Pulmonary embolism [Unknown]
  - Fatigue [Unknown]
  - Dyspnoea [Unknown]

NARRATIVE: CASE EVENT DATE: 20180604
